FAERS Safety Report 6902390-4 (Version None)
Quarter: 2010Q3

REPORT INFORMATION
  Report Type: 
  Country: None (occurrence: None)
  Receive Date: 20100803
  Receipt Date: 20080521
  Transmission Date: 20110219
  Serious: Yes (Other)
  Sender: FDA-Public Use
  Company Number: US-PFIZER INC-2008044060

PATIENT
  Sex: Female
  Weight: 128.8 kg

DRUGS (15)
  1. LYRICA [Suspect]
     Indication: SCIATICA
     Route: 048
     Dates: start: 20071001
  2. LYRICA [Suspect]
     Indication: SPINAL OPERATION
  3. ACIPHEX [Concomitant]
  4. POTASSIUM [Concomitant]
  5. NORVASC [Concomitant]
  6. SYNTHROID [Concomitant]
  7. GLUCOPHAGE [Concomitant]
  8. WELLBUTRIN SR [Concomitant]
  9. FUROSEMIDE [Concomitant]
  10. ZOLOFT [Concomitant]
  11. LIPITOR [Concomitant]
  12. XANAX [Concomitant]
  13. FISH OIL [Concomitant]
  14. VITAMIN B-12 [Concomitant]
  15. CALCIUM [Concomitant]

REACTIONS (7)
  - BALANCE DISORDER [None]
  - DIZZINESS [None]
  - DYSARTHRIA [None]
  - FEELING ABNORMAL [None]
  - GAIT DISTURBANCE [None]
  - IMPAIRED DRIVING ABILITY [None]
  - OEDEMA PERIPHERAL [None]
